FAERS Safety Report 6369287-2 (Version None)
Quarter: 2009Q3

REPORT INFORMATION
  Report Type: 
  Country: None (occurrence: None)
  Receive Date: 20090916
  Receipt Date: 20090909
  Transmission Date: 20100115
  Serious: Yes (Death)
  Sender: FDA-Public Use
  Company Number: 2009SP024338

PATIENT
  Age: 81 Year
  Sex: Male

DRUGS (5)
  1. NITRO-DUR [Suspect]
     Indication: PROPHYLAXIS
     Dates: start: 20090813
  2. ADIRO [Concomitant]
  3. INSULIN [Concomitant]
  4. CARDURA [Concomitant]
  5. PENICILLIN [Concomitant]

REACTIONS (6)
  - HEADACHE [None]
  - HYPERHIDROSIS [None]
  - MOBILITY DECREASED [None]
  - PYREXIA [None]
  - SUDDEN DEATH [None]
  - TACHYCARDIA [None]
